FAERS Safety Report 4597847-8 (Version None)
Quarter: 2005Q1

REPORT INFORMATION
  Report Type: 
  Country: None (occurrence: None)
  Receive Date: 20050125
  Receipt Date: 20040903
  Transmission Date: 20050727
  Serious: No
  Sender: FDA-Public Use
  Company Number: USA030229776

PATIENT
  Age: 53 Year
  Sex: Female

DRUGS (1)
  1. FORTEO [Suspect]
     Indication: OSTEOPOROSIS
     Dosage: 20 UG DAY
     Dates: start: 20040401

REACTIONS (4)
  - ERYTHEMA [None]
  - INJECTION SITE HAEMORRHAGE [None]
  - MALAISE [None]
  - STOMACH DISCOMFORT [None]
